FAERS Safety Report 21857423 (Version 4)
Quarter: 2023Q1

REPORT INFORMATION
  Report Type: Spontaneous
  Country: CA (occurrence: CA)
  Receive Date: 20230113
  Receipt Date: 20230127
  Transmission Date: 20230418
  Serious: Yes (Hospitalization)
  Sender: FDA-Public Use
  Company Number: CA-AstraZeneca-2023A005661

PATIENT
  Age: 0 Year
  Sex: Female
  Weight: 10 kg

DRUGS (3)
  1. SYNAGIS [Suspect]
     Active Substance: PALIVIZUMAB
     Indication: Premature baby
     Dates: start: 20221014
  2. SYNAGIS [Suspect]
     Active Substance: PALIVIZUMAB
     Indication: Respiratory syncytial virus test
     Dates: start: 20221209
  3. SYNAGIS [Suspect]
     Active Substance: PALIVIZUMAB
     Dates: start: 20221112

REACTIONS (10)
  - Respiratory distress [Recovered/Resolved]
  - Nasal congestion [Unknown]
  - Cough [Unknown]
  - Hypotonia [Unknown]
  - Agitation [Unknown]
  - Decreased activity [Unknown]
  - Dyspnoea [Unknown]
  - Decreased appetite [Unknown]
  - Pyrexia [Unknown]
  - Injection related reaction [Unknown]

NARRATIVE: CASE EVENT DATE: 20221201
